FAERS Safety Report 7902635-8 (Version None)
Quarter: 2011Q4

REPORT INFORMATION
  Report Type: 
  Country: None (occurrence: None)
  Receive Date: 20111108
  Receipt Date: 20111101
  Transmission Date: 20120403
  Serious: Yes (Other)
  Sender: FDA-Public Use
  Company Number: US-US-EMD SERONO, INC.-7093250

PATIENT
  Sex: Female

DRUGS (2)
  1. LAMICTAL [Concomitant]
  2. REBIF [Suspect]
     Indication: MULTIPLE SCLEROSIS
     Route: 058
     Dates: start: 20101202

REACTIONS (3)
  - INJECTION SITE PAIN [None]
  - MUSCLE SPASMS [None]
  - PSORIATIC ARTHROPATHY [None]
